FAERS Safety Report 13625652 (Version 1)
Quarter: 2017Q2

REPORT INFORMATION
  Report Type: Spontaneous
  Country: US (occurrence: US)
  Receive Date: 20170608
  Receipt Date: 20170608
  Transmission Date: 20170830
  Serious: No
  Sender: FDA-Public Use
  Company Number: US-SUN PHARMACEUTICAL INDUSTRIES LTD-2016SUN00375

PATIENT
  Age: 39 Year
  Sex: Female

DRUGS (1)
  1. TECHNETIUM TC-99M SULFUR COLLOID KIT [Suspect]
     Active Substance: TECHNETIUM TC-99M SULFUR COLLOID
     Indication: GASTRIC EMPTYING STUDY
     Dosage: 1.1 MCI, OD
     Route: 048
     Dates: start: 20160713, end: 20160713

REACTIONS (4)
  - Bronchospasm [Unknown]
  - Dyspnoea [Unknown]
  - Urticaria [Unknown]
  - Rash [Unknown]

NARRATIVE: CASE EVENT DATE: 20160713
